FAERS Safety Report 21481198 (Version 1)
Quarter: 2022Q4

REPORT INFORMATION
  Report Type: Spontaneous
  Country: US (occurrence: None)
  Receive Date: 20221019
  Receipt Date: 20221019
  Transmission Date: 20230113
  Serious: No
  Sender: FDA-Public Use
  Company Number: None

PATIENT
  Sex: Female

DRUGS (1)
  1. UDENYCA [Suspect]
     Active Substance: PEGFILGRASTIM-CBQV
     Indication: Product used for unknown indication
     Dosage: 6MG EVERY 21 DAYS SQ?
     Route: 058
     Dates: start: 202209

REACTIONS (4)
  - Needle issue [None]
  - Therapy interrupted [None]
  - Device delivery system issue [None]
  - Device leakage [None]
